FAERS Safety Report 22306836 (Version 1)
Quarter: 2023Q2

REPORT INFORMATION
  Report Type: Spontaneous
  Country: IT (occurrence: IT)
  Receive Date: 20230511
  Receipt Date: 20230511
  Transmission Date: 20230721
  Serious: Yes (Other)
  Sender: FDA-Public Use
  Company Number: IT-AMGEN-ITASP2023078539

PATIENT
  Age: 38 Year
  Sex: Male

DRUGS (1)
  1. PANITUMUMAB [Suspect]
     Active Substance: PANITUMUMAB
     Indication: Colon cancer stage IV
     Dosage: 384 MILLIGRAM (FOR 7 MOMNTHS)
     Route: 040
     Dates: start: 20220824

REACTIONS (1)
  - Rash papulosquamous [Recovering/Resolving]

NARRATIVE: CASE EVENT DATE: 20230328
